FAERS Safety Report 21080208 (Version 1)
Quarter: 2022Q3

REPORT INFORMATION
  Report Type: Spontaneous
  Country: CA (occurrence: CA)
  Receive Date: 20220714
  Receipt Date: 20220714
  Transmission Date: 20221026
  Serious: Yes (Other)
  Sender: FDA-Public Use
  Company Number: CA-BAUSCH-BL-2016-016046

PATIENT
  Age: 68 Year
  Sex: Female

DRUGS (1)
  1. GLUMETZA [Suspect]
     Active Substance: METFORMIN HYDROCHLORIDE
     Indication: Diabetes mellitus
     Route: 048

REACTIONS (4)
  - Diabetes mellitus inadequate control [Recovering/Resolving]
  - Diarrhoea [Recovering/Resolving]
  - Product residue present [Recovering/Resolving]
  - Product solubility abnormal [Unknown]

NARRATIVE: CASE EVENT DATE: 20150817
